FAERS Safety Report 6174031-8 (Version None)
Quarter: 2009Q2

REPORT INFORMATION
  Report Type: 
  Country: None (occurrence: None)
  Receive Date: 20090430
  Receipt Date: 20080218
  Transmission Date: 20091009
  Serious: No
  Sender: FDA-Public Use
  Company Number: US-ASTRAZENECA-2008UW03399

PATIENT
  Age: 66 Year
  Sex: Female
  Weight: 77.1 kg

DRUGS (6)
  1. NEXIUM [Suspect]
     Indication: ULCER
     Route: 048
     Dates: start: 20080214
  2. AVALIDE [Concomitant]
     Dosage: 150/12.5MG
  3. LIPITOR [Concomitant]
     Route: 048
  4. ZETIA [Concomitant]
     Route: 048
  5. METFORMIN HCL [Concomitant]
     Route: 048
  6. ASPIRIN [Concomitant]
     Route: 048

REACTIONS (4)
  - ERUCTATION [None]
  - FAECES DISCOLOURED [None]
  - FLATULENCE [None]
  - TONGUE DISCOLOURATION [None]
